FAERS Safety Report 8564031-2 (Version None)
Quarter: 2012Q3

REPORT INFORMATION
  Report Type: 
  Country: None (occurrence: None)
  Receive Date: 20120803
  Receipt Date: 20120801
  Transmission Date: 20120928
  Serious: Yes (Hospitalization)
  Sender: FDA-Public Use
  Company Number: PHHY2012KR063159

PATIENT
  Sex: Female

DRUGS (3)
  1. IMATINIB MESYLATE [Suspect]
     Indication: CHRONIC MYELOID LEUKAEMIA
     Dosage: 600 MG, QD
     Route: 048
     Dates: start: 20120617, end: 20120701
  2. TASIGNA [Suspect]
     Dosage: 800 MG, QD
     Route: 048
     Dates: start: 20120728
  3. TASIGNA [Suspect]
     Indication: CHRONIC MYELOID LEUKAEMIA
     Dosage: 800 MG, QD
     Route: 048
     Dates: start: 20120702, end: 20120711

REACTIONS (1)
  - ASCITES [None]
